FAERS Safety Report 9555269 (Version 1)
Quarter: 2013Q3

REPORT INFORMATION
  Report Type: Spontaneous
  Country: US (occurrence: None)
  Receive Date: 20130724
  Receipt Date: 20130724
  Transmission Date: 20140515
  Serious: No
  Sender: FDA-Public Use
  Company Number: PHEH2013US004254

PATIENT
  Age: 60 Year
  Sex: Female
  Weight: 54.4 kg

DRUGS (12)
  1. GILENYA (FINGOLIMOD) CAPSULE, 0.5MG [Suspect]
     Indication: MULTIPLE SCLEROSIS
     Route: 048
     Dates: start: 20120502
  2. ANAPROX DS (NAPROXEN SODIUM) [Concomitant]
  3. ASPIRIN (ACETYLSALICYLIC ACID) [Concomitant]
  4. BENTYL (DICLOVERINE HYDROCHLORIDE) [Concomitant]
  5. CELEBREX (CELECOXIB) [Concomitant]
  6. COZAAR (LOSARTAN POTASSIUM) (50 MILLIGRAM, TABLETS) (LOSARTAN POTASSIUM) [Concomitant]
  7. FIORICET (BUTABITAL, CAFFEINE, PARACETAMOL) [Concomitant]
  8. FLEXERIL (CYCLOBENZAPRINE HYDROCHLORIDE) [Concomitant]
  9. MECLIZINE HYDROCHLORIDE (MECLOZINE HYDROCHLORIDE) [Concomitant]
  10. PROTONIX (PANTOPRAZOLE SODIUM SESQUIHYDRATE) [Concomitant]
  11. XYZAL [Concomitant]
  12. FAMPRIDINE (FAMPRIDINE) [Concomitant]

REACTIONS (5)
  - Nausea [None]
  - Influenza [None]
  - Cough [None]
  - Dizziness [None]
  - Headache [None]
